FAERS Safety Report 11061287 (Version 7)
Quarter: 2015Q4

REPORT INFORMATION
  Report Type: Spontaneous
  Country: GB (occurrence: GB)
  Receive Date: 20150424
  Receipt Date: 20151120
  Transmission Date: 20160304
  Serious: Yes (Hospitalization, Other)
  Sender: FDA-Public Use
  Company Number: GB-ROCHE-1229380

PATIENT
  Sex: Female

DRUGS (2)
  1. HERCEPTIN [Suspect]
     Active Substance: TRASTUZUMAB
     Indication: NEOPLASM MALIGNANT
     Route: 058
  2. HERCEPTIN [Suspect]
     Active Substance: TRASTUZUMAB
     Route: 058

REACTIONS (26)
  - Metastases to spine [Unknown]
  - Dyspnoea [Not Recovered/Not Resolved]
  - Lower respiratory tract infection [Not Recovered/Not Resolved]
  - Dry skin [Unknown]
  - Back pain [Not Recovered/Not Resolved]
  - Constipation [Unknown]
  - Body temperature increased [Unknown]
  - Arthralgia [Not Recovered/Not Resolved]
  - Muscle spasms [Unknown]
  - Lethargy [Unknown]
  - Depressed mood [Unknown]
  - Anaemia [Unknown]
  - Pain [Unknown]
  - Oral candidiasis [Unknown]
  - Fatigue [Unknown]
  - Decreased appetite [Unknown]
  - Nausea [Unknown]
  - Heart rate increased [Unknown]
  - Injection site reaction [Unknown]
  - Arthralgia [Unknown]
  - Pneumonia [Unknown]
  - Mastitis [Unknown]
  - Skin disorder [Unknown]
  - Insomnia [Not Recovered/Not Resolved]
  - Cellulitis [Recovered/Resolved]
  - Ejection fraction decreased [Unknown]
